FAERS Safety Report 14615011 (Version 2)
Quarter: 2018Q2

REPORT INFORMATION
  Report Type: Spontaneous
  Country: IT (occurrence: IT)
  Receive Date: 20180308
  Receipt Date: 20180404
  Transmission Date: 20180711
  Serious: Yes (Other)
  Sender: FDA-Public Use
  Company Number: IT-PFIZER INC-2018094302

PATIENT
  Age: 15 Year
  Sex: Male

DRUGS (9)
  1. VINCRISTINE SULFATE. [Suspect]
     Active Substance: VINCRISTINE SULFATE
     Indication: BURKITT^S LYMPHOMA STAGE III
     Dosage: 1.6 MG, CYCLIC
     Route: 042
     Dates: start: 20170727
  2. URBASON /00049601/ [Suspect]
     Active Substance: METHYLPREDNISOLONE
     Indication: PROPHYLAXIS
     Dosage: 90 MG, CYCLIC
     Route: 042
     Dates: start: 20170726
  3. UROMITEXAN [Concomitant]
     Active Substance: MESNA
     Indication: PROPHYLAXIS
     Dosage: 160 MG, 1X/DAY
     Dates: start: 20170728, end: 20170730
  4. METHOTREXATE SODIUM. [Suspect]
     Active Substance: METHOTREXATE SODIUM
     Indication: BURKITT^S LYMPHOMA STAGE III
     Dosage: 4750 MG, CYCLIC
     Route: 042
     Dates: start: 20170727
  5. FOLIC ACID. [Concomitant]
     Active Substance: FOLIC ACID
     Indication: BURKITT^S LYMPHOMA STAGE III
     Dosage: 28.5 MG, CYCLIC
     Route: 042
     Dates: start: 20170728, end: 20170730
  6. ZOFRAN [Concomitant]
     Active Substance: ONDANSETRON HYDROCHLORIDE
     Indication: NAUSEA
     Dosage: 6 MG, 1X/DAY
     Route: 042
     Dates: start: 20170727, end: 20170730
  7. ENDOXAN-BAXTER [Suspect]
     Active Substance: CYCLOPHOSPHAMIDE
     Indication: BURKITT^S LYMPHOMA STAGE III
     Dosage: 470 MG, UNK
     Route: 042
     Dates: start: 20170728
  8. LAEVOSAN [Concomitant]
     Indication: PARENTERAL NUTRITION
     Dosage: UNK
     Route: 042
  9. RITUXIMAB. [Suspect]
     Active Substance: RITUXIMAB
     Indication: BURKITT^S LYMPHOMA STAGE III
     Dosage: 569 MG, CYCLIC
     Route: 042
     Dates: start: 20170725

REACTIONS (1)
  - Hyperpyrexia [Recovered/Resolved]

NARRATIVE: CASE EVENT DATE: 20170802
